FAERS Safety Report 16023082 (Version 1)
Quarter: 2019Q1

REPORT INFORMATION
  Report Type: Other
  Country: IT (occurrence: IT)
  Receive Date: 20190301
  Receipt Date: 20190301
  Transmission Date: 20190418
  Serious: Yes (Hospitalization)
  Sender: FDA-Public Use
  Company Number: IT-APOTEX-2019AP008173

PATIENT
  Age: 84 Year
  Sex: Female
  Weight: 65 kg

DRUGS (2)
  1. CLOPIDOGREL [Suspect]
     Active Substance: CLOPIDOGREL BISULFATE
     Indication: INFARCTION
     Dosage: 75 MG, QD
     Route: 048
     Dates: start: 20161110
  2. CARDIOASPIRIN [Suspect]
     Active Substance: ASPIRIN
     Indication: VASCULAR STENT STENOSIS
     Dosage: 100 MG, QD
     Route: 048
     Dates: start: 20110101

REACTIONS (1)
  - Anaemia [Recovering/Resolving]

NARRATIVE: CASE EVENT DATE: 20180224
